FAERS Safety Report 4392989-4 (Version None)
Quarter: 2004Q3

REPORT INFORMATION
  Report Type: 
  Country: None (occurrence: None)
  Receive Date: 20040702
  Receipt Date: 20040621
  Transmission Date: 20050211
  Serious: Yes (Death, Life-Threatening, Other)
  Sender: FDA-Public Use
  Company Number: 2004039205

PATIENT
  Age: 65 Year
  Sex: Male

DRUGS (7)
  1. VFEND [Suspect]
     Indication: BRONCHOPULMONARY ASPERGILLOSIS
     Dosage: SEE IMAGE
     Route: 042
     Dates: start: 20040512, end: 20040514
  2. VFEND [Suspect]
     Indication: SINUSITIS ASPERGILLUS
     Dosage: SEE IMAGE
     Route: 042
     Dates: start: 20040512, end: 20040514
  3. VFEND [Suspect]
     Indication: BRONCHOPULMONARY ASPERGILLOSIS
     Dosage: SEE IMAGE
     Route: 042
     Dates: start: 20040515
  4. VFEND [Suspect]
     Indication: SINUSITIS ASPERGILLUS
     Dosage: SEE IMAGE
     Route: 042
     Dates: start: 20040515
  5. LEVOFLOXACIN [Concomitant]
  6. AMPHJOTERICIN B (AMPHOTERICIN B) [Concomitant]
  7. OMEPRAZOLE [Concomitant]

REACTIONS (4)
  - CARDIO-RESPIRATORY ARREST [None]
  - CREATINE PHOSPHOKINASE DECREASED [None]
  - MYOCARDIAL INFARCTION [None]
  - WHITE BLOOD CELL COUNT DECREASED [None]
